FAERS Safety Report 20130000 (Version 1)
Quarter: 2021Q4

REPORT INFORMATION
  Report Type: Spontaneous
  Country: US (occurrence: US)
  Receive Date: 20211130
  Receipt Date: 20211130
  Transmission Date: 20220303
  Serious: No
  Sender: FDA-Public Use
  Company Number: US-ELI_LILLY_AND_COMPANY-US202111012537

PATIENT
  Sex: Male

DRUGS (6)
  1. BASAGLAR [Suspect]
     Active Substance: INSULIN GLARGINE
     Indication: Diabetes mellitus
     Dosage: 32 U, EACH EVENING
     Route: 058
     Dates: start: 2020
  2. BASAGLAR [Suspect]
     Active Substance: INSULIN GLARGINE
     Indication: Diabetes mellitus
     Dosage: 32 U, EACH EVENING
     Route: 058
     Dates: start: 2020
  3. BASAGLAR [Suspect]
     Active Substance: INSULIN GLARGINE
     Dosage: 32 U, EACH EVENING
     Route: 058
  4. BASAGLAR [Suspect]
     Active Substance: INSULIN GLARGINE
     Dosage: 32 U, EACH EVENING
     Route: 058
  5. NATEGLINIDE [Concomitant]
     Active Substance: NATEGLINIDE
     Indication: Diabetes mellitus
     Dosage: 120 UNK, OTHER (AT EVERY MEAL)
  6. TRADJENTA [Concomitant]
     Active Substance: LINAGLIPTIN
     Indication: Diabetes mellitus
     Dosage: 5 MG

REACTIONS (1)
  - Eye disorder [Unknown]
